FAERS Safety Report 9720424 (Version 1)
Quarter: 2013Q4

REPORT INFORMATION
  Report Type: Spontaneous
  Country: CO (occurrence: CO)
  Receive Date: 20131129
  Receipt Date: 20131129
  Transmission Date: 20140711
  Serious: Yes (Other)
  Sender: FDA-Public Use
  Company Number: CO-AMGEN-COLSP2013084389

PATIENT
  Age: 40 Year
  Sex: Male

DRUGS (4)
  1. ENBREL [Suspect]
     Indication: ANKYLOSING SPONDYLITIS
     Dosage: 50 MG, WEEKLY
     Route: 058
     Dates: start: 201112, end: 20131117
  2. ARCOXIA [Concomitant]
     Indication: SWELLING
     Dosage: 60 MG, AS NEEDED
     Route: 048
  3. ARCOXIA [Concomitant]
     Indication: PAIN
     Dosage: UNK
  4. DORIXINA                           /00729301/ [Concomitant]
     Indication: MUSCLE RELAXANT THERAPY
     Dosage: UNK UNK, AS NECESSARY
     Route: 048

REACTIONS (2)
  - Venous thrombosis [Not Recovered/Not Resolved]
  - Influenza [Not Recovered/Not Resolved]
